FAERS Safety Report 9541677 (Version 1)
Quarter: 2013Q3

REPORT INFORMATION
  Report Type: Spontaneous
  Country: US (occurrence: None)
  Receive Date: 20130919
  Receipt Date: 20130919
  Transmission Date: 20140515
  Serious: Yes (Hospitalization)
  Sender: FDA-Public Use
  Company Number: None

PATIENT
  Age: 82 Year
  Sex: Male
  Weight: 106 kg

DRUGS (1)
  1. XARELTO [Suspect]
     Indication: ARRHYTHMIA
     Dosage: 15 MG QD ORAL
     Route: 048

REACTIONS (1)
  - Haematuria [None]
